FAERS Safety Report 8331217-1 (Version None)
Quarter: 2012Q2

REPORT INFORMATION
  Report Type: 
  Country: None (occurrence: None)
  Receive Date: 20120502
  Receipt Date: 20120412
  Transmission Date: 20120825
  Serious: No
  Sender: FDA-Public Use
  Company Number: US-AMGEN-USASP2011030233

PATIENT
  Age: 49 Year
  Sex: Male
  Weight: 92.971 kg

DRUGS (5)
  1. ENBREL [Suspect]
     Indication: PSORIATIC ARTHROPATHY
     Dosage: 50 MG, QWK
     Route: 058
     Dates: start: 20110401, end: 20110610
  2. ASPIRIN [Concomitant]
     Route: 048
  3. ENBREL [Suspect]
     Indication: PSORIASIS
  4. ALLOPURINOL [Concomitant]
     Route: 048
  5. TAURINE [Concomitant]

REACTIONS (12)
  - INJECTION SITE RASH [None]
  - INJECTION SITE IRRITATION [None]
  - PSORIASIS [None]
  - INJECTION SITE ERYTHEMA [None]
  - PSORIATIC ARTHROPATHY [None]
  - MUSCLE SPASMS [None]
  - THERAPEUTIC RESPONSE DECREASED [None]
  - PAIN IN EXTREMITY [None]
  - SPEECH DISORDER [None]
  - MUSCULOSKELETAL CHEST PAIN [None]
  - INJECTION SITE REACTION [None]
  - INJECTION SITE HAEMATOMA [None]
